FAERS Safety Report 9207493 (Version 7)
Quarter: 2013Q3

REPORT INFORMATION
  Report Type: Report from Study
  Country: BE (occurrence: BE)
  Receive Date: 20130403
  Receipt Date: 20130717
  Transmission Date: 20140515
  Serious: Yes (Hospitalization)
  Sender: FDA-Public Use
  Company Number: BE-ROCHE-1204931

PATIENT
  Age: 69 Year
  Sex: Female
  Weight: 46.7 kg

DRUGS (18)
  1. METHOXY POLYETHYLENE GLYCOL-EPOETIN BETA [Suspect]
     Indication: NEPHROGENIC ANAEMIA
     Dosage: DATE OF LAST DOSE PRIOR TO SAE: 15/MAR/2013
     Route: 042
     Dates: start: 20110215
  2. METHOXY POLYETHYLENE GLYCOL-EPOETIN BETA [Suspect]
     Route: 042
     Dates: start: 20130415
  3. METHOXY POLYETHYLENE GLYCOL-EPOETIN BETA [Suspect]
     Route: 042
     Dates: start: 20130515
  4. METHOXY POLYETHYLENE GLYCOL-EPOETIN BETA [Suspect]
     Route: 042
     Dates: start: 20130614
  5. ZOLPIDEM [Concomitant]
     Route: 065
     Dates: start: 20130114, end: 20130317
  6. ZOLPIDEM [Concomitant]
     Route: 065
     Dates: start: 20130322
  7. CALCITROL [Concomitant]
     Route: 065
     Dates: start: 20130208
  8. CALCIUM POLYSTYRENE SULFONATE [Concomitant]
     Route: 065
     Dates: start: 20100528
  9. ATORVASTATIN [Concomitant]
     Route: 065
     Dates: start: 20090921
  10. ACETYLSALICYLIC ACID [Concomitant]
     Route: 065
     Dates: start: 20080813
  11. CLOBAZAM [Concomitant]
     Route: 065
     Dates: start: 20080218
  12. CALCIUM ACETATE [Concomitant]
     Route: 065
     Dates: start: 20110527
  13. SEVELAMER [Concomitant]
     Route: 065
     Dates: start: 20110603
  14. BUMETANIDE [Concomitant]
     Route: 065
     Dates: start: 20130115, end: 20130317
  15. MOXONIDINE [Concomitant]
     Route: 065
     Dates: start: 20130115, end: 20130317
  16. TERAZOSINE [Concomitant]
     Route: 065
     Dates: start: 20130114, end: 20130317
  17. OLMESARTAN MEDOXOMIL [Concomitant]
     Route: 065
     Dates: start: 20130115
  18. BISOPROLOL [Concomitant]
     Route: 065
     Dates: start: 20130325

REACTIONS (2)
  - Viral infection [Recovered/Resolved]
  - Dressler^s syndrome [Recovered/Resolved]
